FAERS Safety Report 22078531 (Version 1)
Quarter: 2023Q1

REPORT INFORMATION
  Report Type: Spontaneous
  Country: US (occurrence: None)
  Receive Date: 20230308
  Receipt Date: 20230308
  Transmission Date: 20230417
  Serious: Yes (Life-Threatening, Disabling, Other)
  Sender: FDA-Public Use
  Company Number: None

PATIENT
  Age: 36 Year
  Sex: Female
  Weight: 59.85 kg

DRUGS (3)
  1. TRULICITY [Suspect]
     Active Substance: DULAGLUTIDE
     Indication: Type 2 diabetes mellitus
     Dosage: OTHER FREQUENCY : ONCE A WEEK;?OTHER ROUTE : INJECTION;?
     Route: 050
     Dates: start: 20210323, end: 20210330
  2. METFORMIN [Concomitant]
     Active Substance: METFORMIN HYDROCHLORIDE
  3. SYEDA [Concomitant]
     Active Substance: DROSPIRENONE\ETHINYL ESTRADIOL

REACTIONS (19)
  - Hypoaesthesia [None]
  - Motor dysfunction [None]
  - Gait inability [None]
  - Fall [None]
  - Cerebrovascular accident [None]
  - Muscular weakness [None]
  - Middle insomnia [None]
  - Paralysis [None]
  - Hypophagia [None]
  - Weight decreased [None]
  - Vertigo [None]
  - Dizziness [None]
  - Nausea [None]
  - Cerebral ischaemia [None]
  - Dyspnoea [None]
  - Fatigue [None]
  - Aphasia [None]
  - Magnetic resonance imaging head abnormal [None]
  - Malaise [None]

NARRATIVE: CASE EVENT DATE: 20210401
